FAERS Safety Report 5093477-2 (Version None)
Quarter: 2006Q3

REPORT INFORMATION
  Report Type: 
  Country: None (occurrence: None)
  Receive Date: 20060829
  Receipt Date: 20060810
  Transmission Date: 20061208
  Serious: Yes (Hospitalization, Other)
  Sender: FDA-Public Use
  Company Number: US200608002513

PATIENT
  Age: 82 Year
  Sex: Male

DRUGS (3)
  1. FORTEO [Suspect]
     Indication: OSTEOPOROSIS
     Dates: start: 20060501
  2. ZESTRIL /USA/ (LISINOPRIL) [Concomitant]
  3. FORTEO [Concomitant]

REACTIONS (2)
  - GANGRENE [None]
  - LOCALISED INFECTION [None]
